FAERS Safety Report 10916005 (Version 1)
Quarter: 2015Q1

REPORT INFORMATION
  Report Type: Spontaneous
  Country: US (occurrence: US)
  Receive Date: 20150316
  Receipt Date: 20150316
  Transmission Date: 20150721
  Serious: No
  Sender: FDA-Public Use
  Company Number: US-SHIRE-US201502154

PATIENT
  Age: 44 Year
  Sex: Female

DRUGS (1)
  1. VYVANSE [Suspect]
     Active Substance: LISDEXAMFETAMINE DIMESYLATE
     Indication: PRODUCT USED FOR UNKNOWN INDICATION
     Dosage: 60 MG, UNKNOWN
     Route: 048

REACTIONS (8)
  - Memory impairment [Unknown]
  - Feeling abnormal [Unknown]
  - Somnolence [Unknown]
  - Performance status decreased [Unknown]
  - Lethargy [Unknown]
  - Disturbance in attention [Unknown]
  - Drug dose omission [Unknown]
  - Adverse event [Unknown]
